FAERS Safety Report 13156297 (Version 1)
Quarter: 2017Q1

REPORT INFORMATION
  Report Type: Spontaneous
  Country: US (occurrence: US)
  Receive Date: 20170126
  Receipt Date: 20170126
  Transmission Date: 20170428
  Serious: Yes (Hospitalization, Other)
  Sender: FDA-Public Use
  Company Number: US-SAOL THERAPEUTICS-2017SAO00124

PATIENT
  Sex: Male

DRUGS (4)
  1. BACLOFEN. [Suspect]
     Active Substance: BACLOFEN
     Indication: MUSCLE SPASTICITY
     Route: 037
  2. BACLOFEN. [Suspect]
     Active Substance: BACLOFEN
     Indication: DYSTONIA
  3. BACLOFEN. [Suspect]
     Active Substance: BACLOFEN
     Indication: MOVEMENT DISORDER
  4. BACLOFEN. [Suspect]
     Active Substance: BACLOFEN
     Indication: CEREBRAL PALSY

REACTIONS (9)
  - Cerebrospinal fluid leakage [Unknown]
  - Device occlusion [Unknown]
  - Complication associated with device [Unknown]
  - Dystonia [Unknown]
  - Pain [Unknown]
  - Surgery [Unknown]
  - Device damage [Unknown]
  - Haematoma [Unknown]
  - Device failure [Unknown]

NARRATIVE: CASE EVENT DATE: 2015
